FAERS Safety Report 5978482-3 (Version None)
Quarter: 2008Q4

REPORT INFORMATION
  Report Type: 
  Country: None (occurrence: None)
  Receive Date: 20081204
  Receipt Date: 20081127
  Transmission Date: 20090506
  Serious: Yes (Death)
  Sender: FDA-Public Use
  Company Number: ES-CELGENEUS-144-CCAZA-08111518

PATIENT
  Sex: Female

DRUGS (1)
  1. AZACITIDINE [Suspect]
     Route: 058
     Dates: start: 20080101, end: 20081101

REACTIONS (1)
  - ILEUS PARALYTIC [None]
